FAERS Safety Report 11094503 (Version 5)
Quarter: 2015Q3

REPORT INFORMATION
  Report Type: Spontaneous
  Country: US (occurrence: US)
  Receive Date: 20150506
  Receipt Date: 20150702
  Transmission Date: 20151125
  Serious: No
  Sender: FDA-Public Use
  Company Number: US-GLAXOSMITHKLINE-US2015060637

PATIENT
  Age: 55 Year
  Sex: Male

DRUGS (2)
  1. MEPRON [Suspect]
     Active Substance: ATOVAQUONE
     Indication: BABESIOSIS
     Dosage: 5 ML, BID
     Route: 048
     Dates: start: 20150411, end: 20150502
  2. AZITHROMYCIN [Suspect]
     Active Substance: AZITHROMYCIN ANHYDROUS
     Indication: PRODUCT USED FOR UNKNOWN INDICATION
     Dosage: 250 MG, 1D

REACTIONS (2)
  - Xanthopsia [Not Recovered/Not Resolved]
  - Visual impairment [Not Recovered/Not Resolved]

NARRATIVE: CASE EVENT DATE: 20150502
